FAERS Safety Report 22083517 (Version 1)
Quarter: 2023Q1

REPORT INFORMATION
  Report Type: Spontaneous
  Country: US (occurrence: US)
  Receive Date: 20230310
  Receipt Date: 20230310
  Transmission Date: 20230418
  Serious: Yes (Hospitalization)
  Sender: FDA-Public Use
  Company Number: US-MYLANLABS-2023M1024187

PATIENT
  Age: 11 Year
  Sex: Female

DRUGS (5)
  1. WARFARIN [Interacting]
     Active Substance: WARFARIN
     Indication: Anticoagulant therapy
     Dosage: 42 MILLIGRAM, QW
     Route: 048
  2. WARFARIN [Interacting]
     Active Substance: WARFARIN
     Dosage: UNK (WEEKLY WARFARIN DOSE DECREASED OVER 7 WEEKS )
     Route: 048
  3. NORETHINDRONE [Interacting]
     Active Substance: NORETHINDRONE
     Indication: Heavy menstrual bleeding
     Dosage: 10 MILLIGRAM, QD
     Route: 048
  4. LISINOPRIL [Concomitant]
     Active Substance: LISINOPRIL
     Indication: Product used for unknown indication
     Dosage: UNK
     Route: 065
  5. ASPIRIN [Concomitant]
     Active Substance: ASPIRIN
     Indication: Product used for unknown indication
     Dosage: UNK (LOW DOSE)
     Route: 065

REACTIONS (5)
  - Heavy menstrual bleeding [Recovered/Resolved]
  - Drug interaction [Recovered/Resolved]
  - International normalised ratio increased [Recovered/Resolved]
  - Anaemia [Recovered/Resolved]
  - Epistaxis [Recovered/Resolved]
